FAERS Safety Report 10729190 (Version 1)
Quarter: 2015Q1

REPORT INFORMATION
  Report Type: Spontaneous
  Country: US (occurrence: US)
  Receive Date: 20150122
  Receipt Date: 20150122
  Transmission Date: 20150721
  Serious: No
  Sender: FDA-Public Use
  Company Number: US-ASTRAZENECA-2015SE01291

PATIENT
  Age: 79 Year
  Sex: Male
  Weight: 94.3 kg

DRUGS (5)
  1. SPIRIVA [Concomitant]
     Active Substance: TIOTROPIUM BROMIDE MONOHYDRATE
     Indication: ASTHMA
     Route: 055
  2. PULMICORT RESPULES [Suspect]
     Active Substance: BUDESONIDE
     Indication: ASTHMA
     Dosage: 1 MG/2ML, TWO TIMES A DAY
     Route: 055
  3. ALBUTEROL. [Concomitant]
     Active Substance: ALBUTEROL
     Indication: BRONCHOSPASM
     Route: 055
     Dates: end: 2014
  4. ALBUTEROL. [Concomitant]
     Active Substance: ALBUTEROL
     Indication: ASTHMA
     Route: 055
     Dates: end: 2014
  5. BROVANA [Concomitant]
     Active Substance: ARFORMOTEROL TARTRATE

REACTIONS (5)
  - Body height decreased [Unknown]
  - Bronchospasm [Unknown]
  - Cough [Unknown]
  - Intentional product misuse [Unknown]
  - Drug effect decreased [Unknown]

NARRATIVE: CASE EVENT DATE: 2014
